FAERS Safety Report 5892912-7 (Version None)
Quarter: 2008Q3

REPORT INFORMATION
  Report Type: 
  Country: None (occurrence: None)
  Receive Date: 20080922
  Receipt Date: 20080922
  Transmission Date: 20090109
  Serious: No
  Sender: FDA-Public Use
  Company Number: None

PATIENT
  Age: 51 Year
  Sex: Male
  Weight: 56.6996 kg

DRUGS (1)
  1. WELLBUTRIN XL [Suspect]
     Indication: SMOKING CESSATION THERAPY
     Dosage: 150MG BID PO
     Route: 048
     Dates: start: 20080522, end: 20080722

REACTIONS (1)
  - AMPHETAMINES POSITIVE [None]
